FAERS Safety Report 16788511 (Version 3)
Quarter: 2019Q3

REPORT INFORMATION
  Report Type: Spontaneous
  Country: CN (occurrence: CN)
  Receive Date: 20190910
  Receipt Date: 20190926
  Transmission Date: 20191005
  Serious: Yes (Other)
  Sender: FDA-Public Use
  Company Number: CN-PFIZER INC-2019389454

PATIENT
  Age: 69 Year
  Sex: Male
  Weight: 65 kg

DRUGS (2)
  1. SODIUM CHLORIDE. [Concomitant]
     Active Substance: SODIUM CHLORIDE
     Dosage: 250 ML, 3X/DAY
     Route: 041
     Dates: start: 20190823, end: 20190829
  2. MEPEM [Suspect]
     Active Substance: MEROPENEM
     Indication: INTRACRANIAL INFECTION
     Dosage: 2 G, 3X/DAY (INJECT 0.9% SODIUM CHLORIDE INJECTION 250ML+ MEROPENEM 2G)
     Route: 041
     Dates: start: 20190823, end: 20190829

REACTIONS (4)
  - Chills [Recovered/Resolved]
  - Tachypnoea [Recovered/Resolved]
  - Pyrexia [Recovered/Resolved]
  - Dyspnoea [Recovered/Resolved]

NARRATIVE: CASE EVENT DATE: 20190829
